FAERS Safety Report 5309538-6 (Version None)
Quarter: 2007Q2

REPORT INFORMATION
  Report Type: 
  Country: None (occurrence: None)
  Receive Date: 20070427
  Receipt Date: 20060921
  Transmission Date: 20071010
  Serious: No
  Sender: FDA-Public Use
  Company Number: US-GLAXOSMITHKLINE-A0620980A

PATIENT
  Sex: Male

DRUGS (14)
  1. DEXTROAMPHETAMINE SULFATE [Suspect]
     Indication: ATTENTION DEFICIT/HYPERACTIVITY DISORDER
     Route: 048
     Dates: start: 20060501
  2. TESTOSTERONE INJECTION [Concomitant]
  3. PRILOSEC [Concomitant]
  4. OXYCONTIN [Concomitant]
  5. MISOPROSTOL [Concomitant]
  6. SMZ-TMP [Concomitant]
  7. ZELNORM [Concomitant]
  8. EPIVIR [Concomitant]
  9. CADUET [Concomitant]
  10. ACYCLOVIR [Concomitant]
  11. NEXIUM [Concomitant]
  12. UNKNOWN MEDICATION [Concomitant]
  13. VIRAMUNE [Concomitant]
  14. ZIDOVUDINE [Concomitant]

REACTIONS (1)
  - DRUG INEFFECTIVE [None]
